FAERS Safety Report 6930346-4 (Version None)
Quarter: 2010Q3

REPORT INFORMATION
  Report Type: 
  Country: None (occurrence: None)
  Receive Date: 20100818
  Receipt Date: 20100811
  Transmission Date: 20110219
  Serious: Yes (Death)
  Sender: FDA-Public Use
  Company Number: JO-ROCHE-720683

PATIENT
  Age: 66 Year
  Sex: Male

DRUGS (4)
  1. AVASTIN [Suspect]
     Route: 042
     Dates: start: 20091118, end: 20100803
  2. FLUOROURACIL [Concomitant]
     Route: 042
     Dates: start: 20091118, end: 20100803
  3. LEUCOVORIN CALCIUM [Concomitant]
     Route: 042
     Dates: start: 20091118, end: 20100803
  4. OXALIPLATIN [Concomitant]
     Route: 042
     Dates: start: 20091118, end: 20100803

REACTIONS (1)
  - MALIGNANT NEOPLASM PROGRESSION [None]
